FAERS Safety Report 8603214-X (Version None)
Quarter: 2012Q3

REPORT INFORMATION
  Report Type: 
  Country: None (occurrence: None)
  Receive Date: 20120817
  Receipt Date: 20120810
  Transmission Date: 20120928
  Serious: Yes (Hospitalization)
  Sender: FDA-Public Use
  Company Number: FR-TEVA-347457USA

PATIENT
  Sex: Female
  Weight: 58.7 kg

DRUGS (13)
  1. DEXAMETHASONE [Suspect]
     Indication: MANTLE CELL LYMPHOMA
     Dosage: 40 MILLIGRAM DAILY;
     Route: 041
     Dates: start: 20120615
  2. SOTALOL HCL [Concomitant]
     Dates: start: 20070101, end: 20120624
  3. BACTRIM [Concomitant]
     Dates: start: 20120618, end: 20120624
  4. VALACYCLOVIR HYDROCHLORIDE [Concomitant]
     Dates: start: 20120618, end: 20120624
  5. GLIMEPIRIDE [Concomitant]
     Indication: TYPE 2 DIABETES MELLITUS
     Dosage: 1 MILLIGRAM DAILY;
     Dates: start: 20070101
  6. ATORVASTATIN [Concomitant]
     Indication: HYPERCHOLESTEROLAEMIA
     Dosage: 10 MILLIGRAM DAILY;
     Route: 048
     Dates: start: 20070101
  7. ZOLPIDEM [Concomitant]
     Dates: start: 20120618, end: 20120624
  8. POTASSIUM CHLORIDE [Concomitant]
     Indication: HYPOKALAEMIA
     Dosage: 600 MILLIGRAM DAILY;
     Route: 048
     Dates: start: 20070101
  9. TRANDOLAPRIL [Concomitant]
     Indication: HYPERTENSION
     Dosage: 2 MILLIGRAM DAILY;
     Route: 048
     Dates: start: 20070101
  10. VELCADE [Suspect]
     Indication: MANTLE CELL LYMPHOMA
     Route: 058
     Dates: start: 20120614
  11. TREANDA [Suspect]
     Indication: MANTLE CELL LYMPHOMA
     Dosage: 147.6 MILLIGRAM DAILY;
     Route: 041
     Dates: start: 20120614, end: 20120615
  12. MABTHERA [Suspect]
     Indication: MANTLE CELL LYMPHOMA
     Route: 041
     Dates: start: 20120614
  13. GLUCOPHAGE [Concomitant]
     Indication: TYPE 2 DIABETES MELLITUS
     Dosage: 2000 MILLIGRAM DAILY;
     Route: 048
     Dates: start: 20070101

REACTIONS (2)
  - HYPOGLYCAEMIA [None]
  - INFECTION [None]
